FAERS Safety Report 8295796-5 (Version None)
Quarter: 2012Q2

REPORT INFORMATION
  Report Type: 
  Country: None (occurrence: None)
  Receive Date: 20120416
  Receipt Date: 20120406
  Transmission Date: 20120825
  Serious: Yes (Disabling)
  Sender: FDA-Public Use
  Company Number: 2012SP018979

PATIENT
  Age: 39 Year
  Sex: Female
  Weight: 46 kg

DRUGS (2)
  1. GONAL (FOLLITROPIN ALFA) [Suspect]
     Indication: OVULATION INDUCTION
     Dosage: SC
     Route: 058
     Dates: start: 20070101, end: 20080101
  2. PUREGON (FOLLITROPIN BETA /01348901/) [Suspect]
     Indication: OVULATION INDUCTION
     Dosage: SC
     Route: 058
     Dates: start: 20070101, end: 20080101

REACTIONS (2)
  - NEOVASCULARISATION [None]
  - RETINAL HAEMORRHAGE [None]
